FAERS Safety Report 23102359 (Version 1)
Quarter: 2023Q4

REPORT INFORMATION
  Report Type: Spontaneous
  Country: GB (occurrence: GB)
  Receive Date: 20231025
  Receipt Date: 20231025
  Transmission Date: 20240109
  Serious: Yes (Hospitalization, Other)
  Sender: FDA-Public Use
  Company Number: GB-ROCHE-2996984

PATIENT
  Age: 52 Year
  Sex: Female

DRUGS (70)
  1. CAPECITABINE [Suspect]
     Active Substance: CAPECITABINE
     Indication: Breast cancer metastatic
     Dosage: OTHER
     Route: 048
     Dates: start: 20200619, end: 20200820
  2. CAPECITABINE [Suspect]
     Active Substance: CAPECITABINE
     Indication: Breast cancer metastatic
     Route: 048
     Dates: start: 20200821, end: 20210225
  3. CAPECITABINE [Suspect]
     Active Substance: CAPECITABINE
     Indication: Breast cancer metastatic
     Route: 048
     Dates: start: 20210226, end: 20210813
  4. TAXOTERE [Suspect]
     Active Substance: DOCETAXEL
     Indication: Breast cancer metastatic
     Route: 042
     Dates: start: 20151231, end: 20160212
  5. FEMARA [Suspect]
     Active Substance: LETROZOLE
     Indication: Breast cancer metastatic
     Route: 048
     Dates: start: 20160407, end: 20181129
  6. ABRAXANE [Suspect]
     Active Substance: PACLITAXEL
     Indication: Breast cancer metastatic
     Route: 042
     Dates: start: 20160311, end: 20160324
  7. NOLVADEX [Suspect]
     Active Substance: TAMOXIFEN CITRATE
     Indication: Breast cancer metastatic
     Route: 048
     Dates: start: 20181130, end: 20190328
  8. HERCEPTIN [Suspect]
     Active Substance: TRASTUZUMAB
     Indication: Breast cancer metastatic
     Route: 058
     Dates: start: 20151231, end: 20190308
  9. HERCEPTIN [Suspect]
     Active Substance: TRASTUZUMAB
     Indication: Breast cancer metastatic
     Route: 058
     Dates: start: 20200619, end: 20210730
  10. FAM-TRASTUZUMAB DERUXTECAN-NXKI [Suspect]
     Active Substance: FAM-TRASTUZUMAB DERUXTECAN-NXKI
     Indication: Breast cancer metastatic
     Route: 042
     Dates: start: 20211029
  11. KADCYLA [Suspect]
     Active Substance: ADO-TRASTUZUMAB EMTANSINE
     Indication: Breast cancer metastatic
     Route: 042
     Dates: start: 20210405
  12. ACETIC ACID [Concomitant]
     Active Substance: ACETIC ACID
     Dates: start: 20181119, end: 20181127
  13. ACYCLOVIR [Concomitant]
     Active Substance: ACYCLOVIR
     Indication: Oral herpes
     Route: 048
     Dates: start: 20190606, end: 20190627
  14. AMOXICILLIN [Concomitant]
     Active Substance: AMOXICILLIN
     Dates: start: 20181224
  15. BENZYDAMINE [Concomitant]
     Active Substance: BENZYDAMINE
     Dates: start: 20200710
  16. CARBOMER [Concomitant]
     Active Substance: CARBOMER
     Dates: start: 20160706
  17. CETIRIZINE [Concomitant]
     Active Substance: CETIRIZINE HYDROCHLORIDE
     Route: 048
     Dates: start: 20170911
  18. CHLORHEXIDINE [Concomitant]
     Active Substance: CHLORHEXIDINE\CHLORHEXIDINE GLUCONATE
     Dates: start: 20200710
  19. CHLOROCRESOL [Concomitant]
     Active Substance: CHLOROCRESOL
     Dosage: UNK
     Route: 061
  20. CHOLINE BITARTRATE [Concomitant]
     Active Substance: CHOLINE BITARTRATE
     Indication: Product used for unknown indication
     Dosage: UNK
     Route: 061
     Dates: start: 20200117, end: 20200117
  21. CLOBETASONE [Concomitant]
     Active Substance: CLOBETASONE
     Route: 061
  22. CITRUS BERGAMIA [Concomitant]
     Indication: Product used for unknown indication
     Dosage: UNK
     Route: 061
     Dates: start: 20200117, end: 20200117
  23. COCODAMOL [Concomitant]
     Active Substance: ACETAMINOPHEN\CODEINE PHOSPHATE
     Route: 048
     Dates: start: 20160211, end: 20180313
  24. COCODAMOL [Concomitant]
     Active Substance: ACETAMINOPHEN\CODEINE PHOSPHATE
     Route: 048
     Dates: start: 20180222, end: 20180422
  25. COCODAMOL [Concomitant]
     Active Substance: ACETAMINOPHEN\CODEINE PHOSPHATE
     Route: 048
     Dates: start: 20190719
  26. HERBALS [Concomitant]
     Active Substance: HERBALS
     Indication: Product used for unknown indication
     Dosage: UNK
     Route: 061
     Dates: start: 20200117, end: 20200117
  27. DEXAMETHASONE [Concomitant]
     Active Substance: DEXAMETHASONE
     Indication: Product used for unknown indication
     Dosage: UNK
     Dates: start: 20181120, end: 20181127
  28. ESTRIOL [Concomitant]
     Active Substance: ESTRIOL
     Dates: start: 20150415
  29. EUCALYPTUS OIL [Concomitant]
     Active Substance: EUCALYPTUS OIL
     Indication: Product used for unknown indication
     Dosage: UNK
     Route: 061
     Dates: start: 20191219, end: 20191219
  30. EUMOVATE [Concomitant]
     Active Substance: CLOBETASONE BUTYRATE
     Route: 061
     Dates: start: 201904, end: 20190502
  31. EURAX HC [Concomitant]
     Indication: Rash
     Route: 048
     Dates: start: 2017
  32. EURAX HC [Concomitant]
     Indication: Rash
     Route: 061
     Dates: start: 20190516, end: 201906
  33. EVENING PRIMROSE OIL\HERBALS [Concomitant]
     Active Substance: EVENING PRIMROSE OIL\HERBALS
     Indication: Product used for unknown indication
     Dosage: UNK
     Route: 048
     Dates: start: 2017
  34. FEXOFENADINE [Concomitant]
     Active Substance: FEXOFENADINE HYDROCHLORIDE
     Route: 048
     Dates: start: 20170504, end: 20170519
  35. FEXOFENADINE [Concomitant]
     Active Substance: FEXOFENADINE HYDROCHLORIDE
     Route: 048
     Dates: start: 20180222, end: 20180422
  36. FEXOFENADINE [Concomitant]
     Active Substance: FEXOFENADINE HYDROCHLORIDE
     Route: 048
     Dates: start: 20190516
  37. FLUCONAZOLE [Concomitant]
     Active Substance: FLUCONAZOLE
     Route: 048
     Dates: start: 20160221, end: 20160228
  38. FLUCLOXACILLIN [Concomitant]
     Active Substance: FLUCLOXACILLIN
     Route: 048
     Dates: start: 20160315, end: 2016
  39. FLUCLOXACILLIN [Concomitant]
     Active Substance: FLUCLOXACILLIN
     Route: 048
     Dates: start: 20181129, end: 20181210
  40. FLUCLOXACILLIN [Concomitant]
     Active Substance: FLUCLOXACILLIN
     Route: 048
     Dates: start: 20181129, end: 20181210
  41. HYDROCORTISONE [Concomitant]
     Active Substance: HYDROCORTISONE
     Indication: Stomatitis
     Dates: start: 20200710
  42. HYPROMELLOSES [Concomitant]
     Active Substance: HYPROMELLOSES
     Dosage: GTT
     Dates: start: 20160831
  43. LOPERAMIDE [Concomitant]
     Active Substance: LOPERAMIDE
     Route: 048
     Dates: start: 20150415
  44. HERBALS\LAVANDULA ANGUSTIFOLIA WHOLE [Concomitant]
     Active Substance: HERBALS\LAVANDULA ANGUSTIFOLIA WHOLE
     Route: 061
     Dates: start: 20200117, end: 20200117
  45. MOMETASONE [Concomitant]
     Active Substance: MOMETASONE
     Dosage: 2 PUFF
     Dates: start: 20120925
  46. OMEPRAZOLE [Concomitant]
     Active Substance: OMEPRAZOLE
     Route: 048
     Dates: start: 20160212
  47. ONDANSETRON [Concomitant]
     Active Substance: ONDANSETRON
     Route: 048
     Dates: start: 20160212
  48. ACETAMINOPHEN [Concomitant]
     Active Substance: ACETAMINOPHEN
     Route: 048
     Dates: start: 2017
  49. PARAFFIN [Concomitant]
     Active Substance: PARAFFIN
     Indication: Product used for unknown indication
     Dosage: UNK
     Route: 061
     Dates: start: 20180403
  50. PREDNISOLONE [Concomitant]
     Active Substance: PREDNISOLONE
     Dates: start: 20181227
  51. PEPPERMINT OIL [Concomitant]
     Active Substance: PEPPERMINT OIL
     Route: 061
     Dates: start: 20191219, end: 20191219
  52. CHLORPHENIRAMINE MALEATE [Concomitant]
     Active Substance: CHLORPHENIRAMINE MALEATE
     Route: 048
     Dates: start: 20160307, end: 20160307
  53. CHLORPHENIRAMINE MALEATE [Concomitant]
     Active Substance: CHLORPHENIRAMINE MALEATE
     Route: 048
     Dates: start: 20170503, end: 20170503
  54. CHLORPHENIRAMINE MALEATE [Concomitant]
     Active Substance: CHLORPHENIRAMINE MALEATE
     Route: 048
     Dates: start: 201904, end: 20190502
  55. CHLORPHENIRAMINE MALEATE [Concomitant]
     Active Substance: CHLORPHENIRAMINE MALEATE
     Route: 048
     Dates: start: 20190502, end: 20190515
  56. ALBUTEROL [Concomitant]
     Active Substance: ALBUTEROL
     Dosage: 2 PUFF
     Dates: start: 20000418
  57. SYMBICORT [Concomitant]
     Active Substance: BUDESONIDE\FORMOTEROL FUMARATE DIHYDRATE
     Dosage: 1 PUFF
     Dates: start: 20151115, end: 20190719
  58. SYMBICORT [Concomitant]
     Active Substance: BUDESONIDE\FORMOTEROL FUMARATE DIHYDRATE
     Dates: start: 20190720
  59. FLUCLOXACILLIN SODIUM [Concomitant]
     Active Substance: FLUCLOXACILLIN SODIUM
     Indication: Product used for unknown indication
     Dosage: UNK
     Route: 048
     Dates: start: 20160315, end: 2016
  60. OTOMIZE EAR SPRAY [Concomitant]
     Dates: start: 20181120, end: 20181127
  61. OTOMIZE EAR SPRAY [Concomitant]
     Dates: start: 20181120, end: 20181127
  62. SYSTANE BALANCE [Concomitant]
     Active Substance: PROPYLENE GLYCOL
     Route: 047
  63. XAILIN [Concomitant]
     Route: 047
     Dates: start: 20160831
  64. HYALOFEMME [Concomitant]
     Route: 061
     Dates: start: 20180226
  65. PARAFFIN, LIQUID;WHITE SOFT PARAFFIN;WOOL FAT [Concomitant]
     Route: 061
     Dates: start: 20180403
  66. CLINITAS [Concomitant]
     Route: 047
     Dates: start: 20191029
  67. EUCALYPTUS OIL [Concomitant]
     Active Substance: EUCALYPTUS OIL
     Route: 061
     Dates: start: 20191219, end: 20191219
  68. PRIMROSE OIL [Concomitant]
     Route: 048
     Dates: start: 2017
  69. CITRUS BERGAMIA [Concomitant]
     Route: 061
     Dates: start: 20200117, end: 20200117
  70. LOPERAMIDE [Concomitant]
     Active Substance: LOPERAMIDE
     Route: 048
     Dates: start: 20200619

REACTIONS (3)
  - Diarrhoea [Recovered/Resolved]
  - Nausea [Recovered/Resolved]
  - Toxicity to various agents [Recovered/Resolved]

NARRATIVE: CASE EVENT DATE: 20211101
